FAERS Safety Report 6852579-8 (Version None)
Quarter: 2010Q3

REPORT INFORMATION
  Report Type: 
  Country: None (occurrence: None)
  Receive Date: 20100717
  Receipt Date: 20071118
  Transmission Date: 20110219
  Serious: Yes (Other)
  Sender: FDA-Public Use
  Company Number: US-PFIZER INC-2007099159

PATIENT
  Sex: Female
  Weight: 55.3 kg

DRUGS (3)
  1. CHANTIX [Suspect]
     Indication: SMOKING CESSATION THERAPY
     Dates: start: 20071115
  2. ZOLOFT [Concomitant]
  3. MULTI-VITAMINS [Concomitant]

REACTIONS (5)
  - ABNORMAL DREAMS [None]
  - CRYING [None]
  - DEPRESSED MOOD [None]
  - DEPRESSION [None]
  - SUICIDAL IDEATION [None]
